FAERS Safety Report 9229577 (Version 1)
Quarter: 2013Q2

REPORT INFORMATION
  Report Type: Spontaneous
  Country: US (occurrence: US)
  Receive Date: 20130414
  Receipt Date: 20130414
  Transmission Date: 20140414
  Serious: Yes (Hospitalization, Disabling)
  Sender: FDA-Public Use
  Company Number: US-B.I. PHARMACEUTICALS,INC./RIDGEFIELD-2013-BI-09556BP

PATIENT
  Age: 72 Year
  Sex: Female

DRUGS (5)
  1. PRADAXA [Suspect]
     Indication: ATRIAL FIBRILLATION
     Dosage: 300 MG
     Route: 048
     Dates: start: 201102, end: 201301
  2. PRADAXA [Suspect]
     Dosage: 150 MG
     Route: 048
     Dates: start: 201301
  3. MULTAQ [Concomitant]
     Indication: ATRIAL FIBRILLATION
     Dosage: 800 MG
     Route: 048
     Dates: start: 201102
  4. MULTAQ [Concomitant]
     Dosage: 400 MG
     Route: 048
  5. MULTAQ [Concomitant]
     Dosage: 800 MG
     Route: 048

REACTIONS (9)
  - Heart rate irregular [Not Recovered/Not Resolved]
  - Vision blurred [Recovered/Resolved]
  - Dizziness [Not Recovered/Not Resolved]
  - Feeling abnormal [Not Recovered/Not Resolved]
  - Visual impairment [Not Recovered/Not Resolved]
  - Hypertension [Recovered/Resolved]
  - Inflammation [Not Recovered/Not Resolved]
  - Umbilical haemorrhage [Not Recovered/Not Resolved]
  - Abdominal discomfort [Recovered/Resolved]
